FAERS Safety Report 12459207 (Version 2)
Quarter: 2016Q3

REPORT INFORMATION
  Report Type: Spontaneous
  Country: US (occurrence: US)
  Receive Date: 20160613
  Receipt Date: 20160715
  Transmission Date: 20161109
  Serious: Yes (Other)
  Sender: FDA-Public Use
  Company Number: GXBR2016US002058

PATIENT
  Sex: Male
  Weight: 64.85 kg

DRUGS (9)
  1. AMPHETAMINE COMBINATION TABLETS [Suspect]
     Active Substance: AMPHETAMINE
     Indication: HORMONE THERAPY
  2. OXYCODONE [Concomitant]
     Active Substance: OXYCODONE
     Indication: PAIN
     Dosage: UNK DF, UNK
     Route: 048
  3. IBUPROFEN. [Concomitant]
     Active Substance: IBUPROFEN
     Indication: PAIN
     Dosage: UNK DF, UNK
     Route: 065
  4. TYLENOL [Concomitant]
     Active Substance: ACETAMINOPHEN
     Indication: PAIN
     Dosage: UNK DF, UNK
     Route: 065
  5. NEURONTIN [Concomitant]
     Active Substance: GABAPENTIN
     Indication: PAIN
     Dosage: UNK DF, UNK
     Route: 065
  6. XANAX [Concomitant]
     Active Substance: ALPRAZOLAM
     Indication: PAIN
     Dosage: UNK DF, UNK
     Route: 065
  7. AMPHETAMINE COMBINATION TABLETS [Suspect]
     Active Substance: AMPHETAMINE
     Indication: ATTENTION DEFICIT/HYPERACTIVITY DISORDER
     Dosage: 10 MG, UNK
     Route: 048
  8. PROTONIX [Concomitant]
     Active Substance: PANTOPRAZOLE SODIUM
     Indication: GASTRIC DISORDER
     Dosage: UNK DF, UNK
     Route: 065
  9. ASPIRIN USA [Concomitant]
     Active Substance: ASPIRIN
     Indication: PAIN
     Dosage: UNK DF, UNK
     Route: 065

REACTIONS (6)
  - Jaw fracture [Recovered/Resolved]
  - Fall [Recovered/Resolved]
  - Drug effect delayed [Not Recovered/Not Resolved]
  - Nightmare [Not Recovered/Not Resolved]
  - Hand fracture [Unknown]
  - Incorrect route of drug administration [Not Recovered/Not Resolved]
